FAERS Safety Report 16134552 (Version 2)
Quarter: 2019Q2

REPORT INFORMATION
  Report Type: Spontaneous
  Country: SK (occurrence: SK)
  Receive Date: 20190329
  Receipt Date: 20190404
  Transmission Date: 20190711
  Serious: Yes (Other)
  Sender: FDA-Public Use
  Company Number: SK-ELI_LILLY_AND_COMPANY-SK201902007076

PATIENT
  Age: 82 Year
  Sex: Male

DRUGS (4)
  1. VITAMIIN C [Suspect]
     Active Substance: ASCORBIC ACID
     Indication: PANCREATIC CARCINOMA
     Dosage: (7,5 G/50 ML), 30-37,5 G IN 1500 ML SALINE, 2/W
     Route: 041
     Dates: start: 201608, end: 201710
  2. NORMAL SALINE [Concomitant]
     Active Substance: SODIUM CHLORIDE
     Indication: PRODUCT USED FOR UNKNOWN INDICATION
     Dosage: 30-37.5 G IN 1500 ML, TWICE WEEKLY
     Route: 065
     Dates: start: 201608, end: 201710
  3. GEMCITABINE HYDROCHLORIDE. [Suspect]
     Active Substance: GEMCITABINE HYDROCHLORIDE
     Indication: PANCREATIC CARCINOMA
     Dosage: UNK UNK, UNKNOWN
     Route: 065
     Dates: start: 201608, end: 201705
  4. ABRAXANE [Suspect]
     Active Substance: PACLITAXEL
     Indication: PANCREATIC CARCINOMA
     Dosage: UNK UNK, UNKNOWN
     Route: 065
     Dates: start: 201608, end: 201705

REACTIONS (4)
  - Malignant neoplasm progression [Not Recovered/Not Resolved]
  - Tumour associated fever [Unknown]
  - Chronic fatigue syndrome [Unknown]
  - Off label use [Unknown]

NARRATIVE: CASE EVENT DATE: 20161018
